FAERS Safety Report 7132293-4 (Version None)
Quarter: 2010Q4

REPORT INFORMATION
  Report Type: 
  Country: None (occurrence: None)
  Receive Date: 20101202
  Receipt Date: 20101119
  Transmission Date: 20110411
  Serious: Yes (Hospitalization)
  Sender: FDA-Public Use
  Company Number: PHHO2010DE15450

PATIENT
  Sex: Male

DRUGS (4)
  1. AMN107 AMN+CAP [Suspect]
     Indication: CHRONIC MYELOID LEUKAEMIA
     Dosage: 400 MG, BID
     Route: 048
     Dates: start: 20101001, end: 20101028
  2. AMN107 AMN+CAP [Suspect]
     Dosage: NO TREATMENT
     Dates: start: 20101029, end: 20101111
  3. AMN107 AMN+CAP [Suspect]
     Dosage: 800 MG, QD
     Route: 048
     Dates: start: 20101112
  4. MIDAZOLAM COMP-MID+ [Suspect]
     Indication: CHRONIC MYELOID LEUKAEMIA
     Dosage: UNK
     Dates: start: 20100930

REACTIONS (4)
  - CONCOMITANT DISEASE PROGRESSION [None]
  - DIABETES MELLITUS INADEQUATE CONTROL [None]
  - PERIPHERAL VASCULAR DISORDER [None]
  - WOUND COMPLICATION [None]
